FAERS Safety Report 13068539 (Version 4)
Quarter: 2017Q1

REPORT INFORMATION
  Report Type: Spontaneous
  Country: IT (occurrence: IT)
  Receive Date: 20161228
  Receipt Date: 20170207
  Transmission Date: 20170428
  Serious: Yes (Other)
  Sender: FDA-Public Use
  Company Number: IT-PFIZER INC-2016593492

PATIENT
  Age: 59 Year
  Sex: Male

DRUGS (8)
  1. CARDIRENE [Concomitant]
     Active Substance: ASPIRIN DL-LYSINE
     Dosage: UNK
  2. TRIATEC HCT [Concomitant]
     Active Substance: HYDROCHLOROTHIAZIDE\RAMIPRIL
     Dosage: UNK
  3. TRIATEC [Suspect]
     Active Substance: RAMIPRIL
     Indication: HYPERTENSION
     Dosage: 5 MG, DAILY
     Route: 048
     Dates: start: 20161205, end: 20161217
  4. SINVACOR [Concomitant]
     Active Substance: SIMVASTATIN
     Dosage: UNK
  5. METOPROLOL /00376902/ [Suspect]
     Active Substance: METOPROLOL
     Dosage: 200 MG, DAILY
     Route: 048
     Dates: start: 20161205, end: 20161220
  6. CARVASIN [Concomitant]
     Active Substance: ISOSORBIDE DINITRATE
     Dosage: UNK
  7. NITRODERM [Concomitant]
     Active Substance: NITROGLYCERIN
     Dosage: UNK
  8. ZYLLT [Concomitant]
     Active Substance: CLOPIDOGREL BISULFATE
     Dosage: UNK

REACTIONS (3)
  - Hypotension [Recovered/Resolved]
  - Malaise [Recovered/Resolved]
  - Bradycardia [Recovered/Resolved]

NARRATIVE: CASE EVENT DATE: 20161217
